FAERS Safety Report 9491932 (Version 1)
Quarter: 2013Q3

REPORT INFORMATION
  Report Type: Spontaneous
  Country: CN (occurrence: CN)
  Receive Date: 20130830
  Receipt Date: 20130830
  Transmission Date: 20140515
  Serious: Yes (Death, Other)
  Sender: FDA-Public Use
  Company Number: CN-PFIZER INC-2013248639

PATIENT
  Age: 78 Year
  Sex: Male
  Weight: 65 kg

DRUGS (1)
  1. ZYVOX [Suspect]
     Indication: LUNG INFECTION
     Dosage: 0.6 G, 2X/DAY
     Route: 041
     Dates: start: 20120521, end: 20120605

REACTIONS (3)
  - Renal failure [Fatal]
  - Cardiac arrest [Fatal]
  - Platelet count decreased [Recovering/Resolving]
